FAERS Safety Report 17450285 (Version 2)
Quarter: 2020Q1

REPORT INFORMATION
  Report Type: Report from Study
  Country: None (occurrence: US)
  Receive Date: 20200224
  Receipt Date: 20200317
  Transmission Date: 20200409
  Serious: Yes (Hospitalization, Other)
  Sender: FDA-Public Use
  Company Number: US-ABBVIE-19P-163-3180681-00

PATIENT
  Sex: Male

DRUGS (6)
  1. IMBRUVICA [Suspect]
     Active Substance: IBRUTINIB
     Route: 048
  2. ACETAMINOPHEN. [Concomitant]
     Active Substance: ACETAMINOPHEN
     Indication: PRODUCT USED FOR UNKNOWN INDICATION
  3. HYDROCODONE [Concomitant]
     Active Substance: HYDROCODONE
     Indication: PRODUCT USED FOR UNKNOWN INDICATION
  4. IMBRUVICA [Suspect]
     Active Substance: IBRUTINIB
     Indication: ACUTE LYMPHOCYTIC LEUKAEMIA
     Route: 048
  5. BUSPIRONE [Concomitant]
     Active Substance: BUSPIRONE HYDROCHLORIDE
     Indication: PRODUCT USED FOR UNKNOWN INDICATION
  6. IMBRUVICA [Suspect]
     Active Substance: IBRUTINIB
     Route: 048

REACTIONS (17)
  - Headache [Unknown]
  - Back pain [Unknown]
  - Stress [Unknown]
  - Diarrhoea [Unknown]
  - Panic attack [Unknown]
  - Prostatomegaly [Unknown]
  - Visual impairment [Unknown]
  - Hypoacusis [Unknown]
  - Pain in extremity [Unknown]
  - Dizziness [Unknown]
  - Abdominal pain upper [Unknown]
  - Mental disorder [Unknown]
  - Pain [Unknown]
  - Gait disturbance [Unknown]
  - Urinary retention [Unknown]
  - Anxiety [Unknown]
  - Constipation [Unknown]
